FAERS Safety Report 14543060 (Version 2)
Quarter: 2018Q1

REPORT INFORMATION
  Report Type: Spontaneous
  Country: US (occurrence: US)
  Receive Date: 20180216
  Receipt Date: 20180308
  Transmission Date: 20180509
  Serious: Yes (Other)
  Sender: FDA-Public Use
  Company Number: US-PFIZER INC-2018063553

PATIENT
  Age: 31 Year
  Sex: Female

DRUGS (1)
  1. TRANEXAMIC ACID. [Suspect]
     Active Substance: TRANEXAMIC ACID
     Indication: TRAUMATIC HAEMORRHAGE
     Dosage: 1 G, UNK
     Route: 042

REACTIONS (1)
  - Atrial thrombosis [Recovered/Resolved]
